FAERS Safety Report 17284627 (Version 1)
Quarter: 2020Q1

REPORT INFORMATION
  Report Type: Spontaneous
  Country: US (occurrence: US)
  Receive Date: 20200117
  Receipt Date: 20200117
  Transmission Date: 20200409
  Serious: Yes (Other)
  Sender: FDA-Public Use
  Company Number: US-SHIRE-US202000891

PATIENT

DRUGS (1)
  1. XIIDRA [Suspect]
     Active Substance: LIFITEGRAST
     Indication: DRY EYE
     Dosage: 0.2 DROP, 2X/DAY:BID
     Route: 047

REACTIONS (2)
  - Anastomotic ulcer [Unknown]
  - Ophthalmic herpes simplex [Recovering/Resolving]
